FAERS Safety Report 7959167-0 (Version None)
Quarter: 2011Q4

REPORT INFORMATION
  Report Type: 
  Country: None (occurrence: None)
  Receive Date: 20111206
  Receipt Date: 20101222
  Transmission Date: 20120403
  Serious: No
  Sender: FDA-Public Use
  Company Number: US-ABBOTT-10P-163-0694037-00

PATIENT
  Age: 16 Year
  Sex: Female
  Weight: 59.02 kg

DRUGS (2)
  1. OMNICEF [Suspect]
     Indication: SINUSITIS
     Route: 048
     Dates: start: 20101207, end: 20101216
  2. OMNICEF [Suspect]
     Indication: EAR INFECTION

REACTIONS (5)
  - ARTHRALGIA [None]
  - OEDEMA PERIPHERAL [None]
  - LIP SWELLING [None]
  - PRURITUS [None]
  - PAPULE [None]
